FAERS Safety Report 7286820-7 (Version None)
Quarter: 2011Q1

REPORT INFORMATION
  Report Type: 
  Country: None (occurrence: None)
  Receive Date: 20110210
  Receipt Date: 20110128
  Transmission Date: 20110831
  Serious: Yes (Hospitalization, Congenital Anomaly)
  Sender: FDA-Public Use
  Company Number: DE-MYLANLABS-2011S1001909

PATIENT
  Age: 0 Year
  Sex: Male
  Weight: 2.89 kg

DRUGS (4)
  1. FOLIC ACID [Concomitant]
     Indication: PROPHYLAXIS OF NEURAL TUBE DEFECT
     Route: 064
  2. LEVETIRACETAM [Suspect]
     Dosage: 750 [3X250MG/D ]
     Route: 064
  3. VALPROIC ACID [Suspect]
     Dosage: 1750 [(500-500-750)MG/D ]
     Route: 064
  4. LAMOTRIGINE [Suspect]
     Dosage: 325 [(3X75+100)MG/D ]
     Route: 064

REACTIONS (6)
  - DRUG EXPOSURE DURING PREGNANCY [None]
  - AGITATION NEONATAL [None]
  - HYPOTONIA NEONATAL [None]
  - DYSMORPHISM [None]
  - FEEDING DISORDER NEONATAL [None]
  - NEONATAL RESPIRATORY DISTRESS SYNDROME [None]
